FAERS Safety Report 8096711-X (Version None)
Quarter: 2012Q1

REPORT INFORMATION
  Report Type: 
  Country: None (occurrence: None)
  Receive Date: 20120129
  Receipt Date: 20111114
  Transmission Date: 20120608
  Serious: No
  Sender: FDA-Public Use
  Company Number: US-ABBOTT-11P-163-0874575-00

PATIENT
  Sex: Female
  Weight: 70.37 kg

DRUGS (2)
  1. HUMIRA [Suspect]
     Indication: RHEUMATOID ARTHRITIS
     Dates: start: 20111031
  2. PREDNISONE TAB [Concomitant]
     Indication: RHEUMATOID ARTHRITIS

REACTIONS (14)
  - HEADACHE [None]
  - DIZZINESS [None]
  - INJECTION SITE ERYTHEMA [None]
  - HYPERHIDROSIS [None]
  - SINUSITIS [None]
  - ERYTHEMA [None]
  - CHILLS [None]
  - INJECTION SITE PAIN [None]
  - OROPHARYNGEAL PAIN [None]
  - PYREXIA [None]
  - PRURITUS [None]
  - DYSPNOEA [None]
  - RASH MACULAR [None]
  - NAUSEA [None]
